FAERS Safety Report 8036352-3 (Version None)
Quarter: 2012Q1

REPORT INFORMATION
  Report Type: 
  Country: None (occurrence: None)
  Receive Date: 20120111
  Receipt Date: 20111208
  Transmission Date: 20120608
  Serious: No
  Sender: FDA-Public Use
  Company Number: US-GLAXOSMITHKLINE-A0957712A

PATIENT
  Sex: Male

DRUGS (1)
  1. JALYN [Suspect]
     Indication: PRODUCT USED FOR UNKNOWN INDICATION
     Dosage: 1CAP SINGLE DOSE
     Route: 048
     Dates: start: 20110101

REACTIONS (1)
  - MIGRAINE [None]
